FAERS Safety Report 4951246-5 (Version None)
Quarter: 2006Q1

REPORT INFORMATION
  Report Type: 
  Country: None (occurrence: None)
  Receive Date: 20060317
  Receipt Date: 20060308
  Transmission Date: 20060701
  Serious: Yes (Other)
  Sender: FDA-Public Use
  Company Number: AT200603001739

PATIENT
  Age: 31 Year
  Sex: Female
  Weight: 43 kg

DRUGS (2)
  1. ZYPREXA [Suspect]
     Indication: PSYCHOTIC DISORDER
     Dosage: 10 MG, ORAL; SEE IMAGE
     Route: 048
     Dates: start: 20060209, end: 20060223
  2. ZYPREXA [Suspect]
     Indication: PSYCHOTIC DISORDER
     Dosage: 10 MG, ORAL; SEE IMAGE
     Route: 048
     Dates: start: 20060301, end: 20060307

REACTIONS (4)
  - ANOREXIA [None]
  - CONDITION AGGRAVATED [None]
  - LEUKOPENIA [None]
  - PSYCHOTIC DISORDER [None]
